FAERS Safety Report 7987468-9 (Version None)
Quarter: 2011Q4

REPORT INFORMATION
  Report Type: 
  Country: None (occurrence: None)
  Receive Date: 20111216
  Receipt Date: 20111205
  Transmission Date: 20120403
  Serious: Yes (Other)
  Sender: FDA-Public Use
  Company Number: PHEH2011US010583

PATIENT
  Sex: Female
  Weight: 71 kg

DRUGS (6)
  1. ALLOPURINOL [Concomitant]
     Dosage: 100 MG
     Route: 048
  2. JANACIN [Concomitant]
     Dosage: 100 MG
     Route: 048
  3. AFINITOR [Suspect]
     Indication: MALIGNANT NEOPLASM OF ISLETS OF LANGERHANS
     Dosage: 10 MG, QD
     Route: 048
     Dates: start: 20110622, end: 20110729
  4. HUMALOG [Concomitant]
     Indication: DIABETES MELLITUS
     Dosage: 500 MG
  5. COLCHICINE [Concomitant]
     Route: 048
  6. LANTUS [Concomitant]
     Indication: DIABETES MELLITUS
     Dosage: 100 MG

REACTIONS (4)
  - NEOPLASM PROGRESSION [None]
  - DIZZINESS POSTURAL [None]
  - OEDEMA PERIPHERAL [None]
  - NEOPLASM MALIGNANT [None]
